FAERS Safety Report 22302361 (Version 2)
Quarter: 2023Q2

REPORT INFORMATION
  Report Type: Spontaneous
  Country: JP (occurrence: JP)
  Receive Date: 20230510
  Receipt Date: 20230529
  Transmission Date: 20230721
  Serious: Yes (Hospitalization)
  Sender: FDA-Public Use
  Company Number: JP-MTPC-MTPC2023-0011524

PATIENT
  Age: 7 Decade
  Sex: Male

DRUGS (2)
  1. EDARAVONE [Suspect]
     Active Substance: EDARAVONE
     Indication: Amyotrophic lateral sclerosis
     Dosage: 60 MILLIGRAM, QD
     Route: 041
  2. RILUZOLE [Concomitant]
     Active Substance: RILUZOLE
     Indication: Amyotrophic lateral sclerosis
     Route: 048

REACTIONS (12)
  - Gastrostomy [Unknown]
  - Dyspnoea [Unknown]
  - Sputum retention [Unknown]
  - Pyrexia [Unknown]
  - Pneumonia [Unknown]
  - Respiratory failure [Unknown]
  - Weight decreased [Unknown]
  - Mechanical ventilation [Unknown]
  - Dropped head syndrome [Unknown]
  - Abnormal behaviour [Unknown]
  - Mechanical ventilation [Unknown]
  - Dysgraphia [Unknown]
